FAERS Safety Report 24638145 (Version 4)
Quarter: 2025Q1

REPORT INFORMATION
  Report Type: Report from Study
  Country: US (occurrence: US)
  Receive Date: 20241119
  Receipt Date: 20250108
  Transmission Date: 20250409
  Serious: Yes (Other)
  Sender: ABBVIE
  Company Number: US-ABBVIE-5841568

PATIENT
  Age: 52 Year
  Sex: Female
  Weight: 75 kg

DRUGS (1)
  1. RINVOQ [Suspect]
     Active Substance: UPADACITINIB
     Indication: Psoriatic arthropathy
     Route: 048
     Dates: start: 20240409

REACTIONS (4)
  - Nerve compression [Recovering/Resolving]
  - Postural orthostatic tachycardia syndrome [Not Recovered/Not Resolved]
  - Hypotension [Unknown]
  - Injury [Unknown]

NARRATIVE: CASE EVENT DATE: 20180501
